FAERS Safety Report 13871656 (Version 1)
Quarter: 2017Q3

REPORT INFORMATION
  Report Type: Spontaneous
  Country: US (occurrence: None)
  Receive Date: 20170814
  Receipt Date: 20170814
  Transmission Date: 20171127
  Serious: No
  Sender: FDA-Public Use
  Company Number: None

PATIENT
  Age: 69 Year
  Sex: Male

DRUGS (1)
  1. HARVONI [Suspect]
     Active Substance: LEDIPASVIR\SOFOSBUVIR
     Indication: CHRONIC HEPATITIS C
     Dosage: 90/400 MG DAILY BY MOUTH
     Route: 048
     Dates: start: 20170614

REACTIONS (7)
  - Fatigue [None]
  - Thirst [None]
  - Dry mouth [None]
  - Headache [None]
  - Dizziness [None]
  - Abdominal discomfort [None]
  - Confusional state [None]

NARRATIVE: CASE EVENT DATE: 20170801
